FAERS Safety Report 9796043 (Version 3)
Quarter: 2014Q1

REPORT INFORMATION
  Report Type: Spontaneous
  Country: BR (occurrence: BR)
  Receive Date: 20140103
  Receipt Date: 20140122
  Transmission Date: 20141002
  Serious: Yes (Death, Other)
  Sender: FDA-Public Use
  Company Number: BR-PFIZER INC-2013373873

PATIENT
  Age: 79 Year
  Sex: Male

DRUGS (1)
  1. SUTENT [Suspect]
     Indication: RENAL CELL CARCINOMA
     Dosage: 1 CAPSULE OF STRENGTH 50 MG ONCE A DAY, CYCLE 4 TO 2
     Route: 048
     Dates: start: 20131205

REACTIONS (4)
  - Death [Fatal]
  - Infarction [Unknown]
  - Local swelling [Unknown]
  - Swelling face [Unknown]
